FAERS Safety Report 15761493 (Version 2)
Quarter: 2020Q3

REPORT INFORMATION
  Report Type: Spontaneous
  Country: US (occurrence: US)
  Receive Date: 20181226
  Receipt Date: 20200910
  Transmission Date: 20201102
  Serious: Yes (Hospitalization)
  Sender: FDA-Public Use
  Company Number: US-JNJFOC-20181228799

PATIENT
  Age: 69 Year
  Sex: Female

DRUGS (1)
  1. INVOKANA [Suspect]
     Active Substance: CANAGLIFLOZIN
     Indication: TYPE 2 DIABETES MELLITUS
     Route: 048
     Dates: start: 20131101

REACTIONS (4)
  - Cellulitis [Recovering/Resolving]
  - Osteomyelitis [Unknown]
  - Toe amputation [Unknown]
  - Skin necrosis [Recovering/Resolving]

NARRATIVE: CASE EVENT DATE: 201709
